FAERS Safety Report 4292072-2 (Version None)
Quarter: 2004Q1

REPORT INFORMATION
  Report Type: 
  Country: None (occurrence: None)
  Receive Date: 20040126
  Receipt Date: 20031113
  Transmission Date: 20041129
  Serious: No
  Sender: FDA-Public Use
  Company Number: US_030896968

PATIENT
  Age: 71 Year
  Sex: Female

DRUGS (3)
  1. FORTEO [Suspect]
     Dates: start: 20030701
  2. PREDNISONE [Concomitant]
  3. BLOOD PRESSURE PILL [Concomitant]

REACTIONS (3)
  - DRY MOUTH [None]
  - RHINORRHOEA [None]
  - TREMOR [None]
